FAERS Safety Report 16752043 (Version 1)
Quarter: 2019Q3

REPORT INFORMATION
  Report Type: Spontaneous
  Country: US (occurrence: US)
  Receive Date: 20190828
  Receipt Date: 20190828
  Transmission Date: 20191005
  Serious: Yes (Hospitalization)
  Sender: FDA-Public Use
  Company Number: US-SHIRE-US201922998

PATIENT
  Age: 67 Year
  Sex: Female
  Weight: 66.67 kg

DRUGS (1)
  1. GATTEX [Suspect]
     Active Substance: TEDUGLUTIDE\WATER
     Indication: PRODUCT USED FOR UNKNOWN INDICATION
     Dosage: 0.3335 UNITS UNKNOWN, 1X/DAY:QD
     Route: 058
     Dates: start: 20190410

REACTIONS (3)
  - Product dose omission [Not Recovered/Not Resolved]
  - Dehydration [Unknown]
  - Insurance issue [Unknown]

NARRATIVE: CASE EVENT DATE: 20190710
